FAERS Safety Report 4316345-X (Version None)
Quarter: 2004Q1

REPORT INFORMATION
  Report Type: 
  Country: None (occurrence: None)
  Receive Date: 20040311
  Receipt Date: 20040227
  Transmission Date: 20041129
  Serious: Yes (Hospitalization, Other)
  Sender: FDA-Public Use
  Company Number: HQWYE963330DEC03

PATIENT
  Age: 64 Year
  Sex: Male

DRUGS (7)
  1. CORDARONE [Suspect]
     Indication: ARRHYTHMIA
     Dosage: 200 MG 1X PER 1 DAY
     Route: 048
     Dates: start: 20030201, end: 20030520
  2. TENORMIN [Suspect]
     Dosage: 50 MG 1X PER 1 DAY
     Route: 048
     Dates: start: 20030201, end: 20030520
  3. IMOVANE (ZOPICLONE) [Concomitant]
  4. PREVISCAN (FLUINDIONE) [Concomitant]
  5. ALLOPURINOL [Concomitant]
  6. LASIX [Concomitant]
  7. POTASSIUM CHLORIDE [Concomitant]

REACTIONS (3)
  - BRADYCARDIA [None]
  - DRUG INTERACTION [None]
  - SYNCOPE [None]
